FAERS Safety Report 5654736-5 (Version None)
Quarter: 2008Q1

REPORT INFORMATION
  Report Type: 
  Country: None (occurrence: None)
  Receive Date: 20080219
  Receipt Date: 20071115
  Transmission Date: 20080703
  Serious: No
  Sender: FDA-Public Use
  Company Number: WAES 0711USA03485

PATIENT
  Age: 31 Year
  Sex: Male

DRUGS (2)
  1. JANUVIA [Suspect]
     Indication: TYPE 1 DIABETES MELLITUS
     Dosage: 100 MG/DAILY/PO
     Route: 048
     Dates: start: 20071112
  2. NOVOLIN 70/30 [Concomitant]

REACTIONS (2)
  - DRUG ADMINISTRATION ERROR [None]
  - NAUSEA [None]
